FAERS Safety Report 17333335 (Version 5)
Quarter: 2020Q4

REPORT INFORMATION
  Report Type: Spontaneous
  Country: CA (occurrence: CA)
  Receive Date: 20200128
  Receipt Date: 20201124
  Transmission Date: 20210113
  Serious: Yes (Other)
  Sender: FDA-Public Use
  Company Number: CA-PFIZER INC-2019285493

PATIENT
  Age: 47 Year
  Sex: Female

DRUGS (4)
  1. PENTASA [Concomitant]
     Active Substance: MESALAMINE
     Dosage: UNK
  2. XELJANZ [Suspect]
     Active Substance: TOFACITINIB CITRATE
     Indication: COLITIS ULCERATIVE
     Dosage: 10 MG, 2X/DAY
     Route: 048
     Dates: start: 20190626
  3. XELJANZ [Suspect]
     Active Substance: TOFACITINIB CITRATE
     Indication: COLITIS
  4. METHOTREXATE. [Concomitant]
     Active Substance: METHOTREXATE
     Dosage: 25 MG
     Route: 065

REACTIONS (6)
  - Fatigue [Unknown]
  - Gamma-glutamyltransferase increased [Unknown]
  - Frequent bowel movements [Recovering/Resolving]
  - Haematochezia [Recovered/Resolved]
  - Condition aggravated [Recovering/Resolving]
  - Proctitis [Unknown]

NARRATIVE: CASE EVENT DATE: 201907
